FAERS Safety Report 15251169 (Version 6)
Quarter: 2019Q4

REPORT INFORMATION
  Report Type: Report from Study
  Country: CA (occurrence: CA)
  Receive Date: 20180807
  Receipt Date: 20191205
  Transmission Date: 20200122
  Serious: Yes (Other)
  Sender: FDA-Public Use
  Company Number: CA-SA-2018SA203030

PATIENT
  Age: 29 Year
  Sex: Female

DRUGS (13)
  1. METHYLPREDNISOLONE. [Concomitant]
     Active Substance: METHYLPREDNISOLONE
     Indication: PREMEDICATION
     Dosage: 1 G, UNK
     Route: 042
     Dates: start: 20180718, end: 20180718
  2. RANITIDINE. [Concomitant]
     Active Substance: RANITIDINE
     Indication: PREMEDICATION
     Dosage: 150 MG, UNK
     Route: 048
     Dates: start: 20180718, end: 20180720
  3. ACYCLOVIR [ACICLOVIR] [Concomitant]
     Active Substance: ACYCLOVIR
     Indication: PREMEDICATION
     Dosage: 200 MG, BID
     Route: 048
     Dates: start: 20180718
  4. ALEMTUZUMAB [Suspect]
     Active Substance: ALEMTUZUMAB
     Indication: RELAPSING-REMITTING MULTIPLE SCLEROSIS
     Dosage: 12 MG, QD
     Route: 041
     Dates: start: 20180718, end: 20180720
  5. GRAVOL GINGER [Concomitant]
     Active Substance: GINGER
     Indication: PREMEDICATION
     Dosage: UNK UNK, PRN
     Route: 048
     Dates: start: 20180718
  6. BENADRYL [Concomitant]
     Active Substance: DIPHENHYDRAMINE HYDROCHLORIDE
     Indication: PREMEDICATION
     Dosage: 25 MG, UNK
     Route: 048
     Dates: start: 20180718, end: 20180720
  7. GRAVOL [Concomitant]
     Active Substance: DIMENHYDRINATE
     Indication: PREMEDICATION
     Dosage: 50 MG, UNK
     Route: 048
     Dates: start: 20180719, end: 20180720
  8. TYLENOL [Concomitant]
     Active Substance: ACETAMINOPHEN
     Indication: PREMEDICATION
     Dosage: 1000 MG, PRN
     Route: 048
     Dates: start: 20180718
  9. CYMBALTA [Concomitant]
     Active Substance: DULOXETINE HYDROCHLORIDE
     Dosage: 30 MG, QD
     Route: 048
  10. VITAMIN D [VITAMIN D NOS] [Concomitant]
     Active Substance: VITAMIN D NOS
     Dosage: 4000 IU, QD
     Route: 048
  11. METHYLPREDNISOLONE. [Concomitant]
     Active Substance: METHYLPREDNISOLONE
     Dosage: 500 MG
     Route: 042
     Dates: start: 20180719, end: 20180720
  12. REACTINE [CETIRIZINE HYDROCHLORIDE] [Concomitant]
     Active Substance: CETIRIZINE HYDROCHLORIDE
     Indication: PREMEDICATION
     Dosage: 10 MG, UNK
     Route: 048
     Dates: start: 20180718, end: 20180720
  13. COVERSYL PLUS [INDAPAMIDE;PERINDOPRIL ARGININE] [Concomitant]
     Active Substance: INDAPAMIDE\PERINDOPRIL ARGININE
     Dosage: 4MG/1.25MG, QD
     Route: 048

REACTIONS (24)
  - Vitamin B complex deficiency [Not Recovered/Not Resolved]
  - Haematocrit decreased [Not Recovered/Not Resolved]
  - Urine leukocyte esterase [Recovered/Resolved]
  - Tachycardia [Recovered/Resolved]
  - Crying [Not Recovered/Not Resolved]
  - Carbon dioxide increased [Recovered/Resolved]
  - Fatigue [Not Recovered/Not Resolved]
  - Dyspnoea [Not Recovered/Not Resolved]
  - Headache [Recovered/Resolved]
  - Flushing [Not Recovered/Not Resolved]
  - Blood urine present [Not Recovered/Not Resolved]
  - Lymphocyte count decreased [Recovered/Resolved]
  - Onychoclasis [Not Recovered/Not Resolved]
  - Vaginal haemorrhage [Not Recovered/Not Resolved]
  - Hypertension [Recovered/Resolved]
  - Loss of consciousness [Unknown]
  - Red cell distribution width increased [Not Recovered/Not Resolved]
  - Haemoglobin decreased [Recovered/Resolved]
  - Blood potassium decreased [Unknown]
  - Headache [Not Recovered/Not Resolved]
  - Platelet count increased [Not Recovered/Not Resolved]
  - Blood sodium decreased [Unknown]
  - Urine abnormality [Recovered/Resolved]
  - Poor quality sleep [Recovering/Resolving]

NARRATIVE: CASE EVENT DATE: 20180718
